FAERS Safety Report 9123967 (Version 1)
Quarter: 2013Q1

REPORT INFORMATION
  Report Type: Report from Study
  Country: FR (occurrence: FR)
  Receive Date: 20130227
  Receipt Date: 20130227
  Transmission Date: 20140127
  Serious: Yes (Other)
  Sender: FDA-Public Use
  Company Number: FR-VERTEX PHARMACEUTICALS INC.-2013-002757

PATIENT
  Sex: 0

DRUGS (3)
  1. INCIVO [Suspect]
     Indication: HEPATITIS C
     Route: 048
  2. RIBAVIRINE [Suspect]
     Indication: PRODUCT USED FOR UNKNOWN INDICATION
     Dosage: DOSAGE FORM: UNSPECIFIED
     Route: 005
  3. PEG INTERFERON [Suspect]
     Indication: PRODUCT USED FOR UNKNOWN INDICATION
     Dosage: DOSAGE FORM: UNSPECIFIED
     Route: 065

REACTIONS (2)
  - Renal disorder [Unknown]
  - Treatment failure [Unknown]
